FAERS Safety Report 6068043-2 (Version None)
Quarter: 2009Q1

REPORT INFORMATION
  Report Type: 
  Country: None (occurrence: None)
  Receive Date: 20090121
  Receipt Date: 20080403
  Transmission Date: 20090719
  Serious: Yes (Other)
  Sender: FDA-Public Use
  Company Number: HQWYE446005DEC03

PATIENT
  Age: 62 Year
  Sex: Female

DRUGS (5)
  1. PREMPRO [Suspect]
     Indication: MENOPAUSE
     Dosage: ORAL
     Route: 048
  2. ACTIVELLA [Suspect]
  3. ESTRATEST [Suspect]
  4. PREMARIN [Suspect]
  5. PROVERA [Suspect]

REACTIONS (8)
  - BLOOD PRESSURE INCREASED [None]
  - BREAST CANCER FEMALE [None]
  - CONFUSIONAL STATE [None]
  - DIZZINESS [None]
  - HEADACHE [None]
  - LABILE BLOOD PRESSURE [None]
  - NONSPECIFIC REACTION [None]
  - PAIN [None]
